FAERS Safety Report 5123281-8 (Version None)
Quarter: 2006Q4

REPORT INFORMATION
  Report Type: 
  Country: None (occurrence: None)
  Receive Date: 20061009
  Receipt Date: 20060928
  Transmission Date: 20070319
  Serious: Yes (Hospitalization)
  Sender: FDA-Public Use
  Company Number: FR-GLAXOSMITHKLINE-B0440221A

PATIENT
  Age: 27 Year
  Sex: Female

DRUGS (3)
  1. DEROXAT [Suspect]
     Route: 048
     Dates: start: 20060728, end: 20060817
  2. DIHYDAN [Suspect]
     Route: 048
     Dates: start: 20060728, end: 20060815
  3. MITOXANTRONE [Concomitant]
     Dosage: 1INJ SINGLE DOSE
     Route: 042
     Dates: start: 20060727, end: 20060727

REACTIONS (4)
  - ALANINE AMINOTRANSFERASE INCREASED [None]
  - ASPARTATE AMINOTRANSFERASE INCREASED [None]
  - EOSINOPHILIA [None]
  - RASH MACULO-PAPULAR [None]
